FAERS Safety Report 13005699 (Version 2)
Quarter: 2017Q1

REPORT INFORMATION
  Report Type: Spontaneous
  Country: NL (occurrence: NL)
  Receive Date: 20161207
  Receipt Date: 20170117
  Transmission Date: 20170428
  Serious: Yes (Other)
  Sender: FDA-Public Use
  Company Number: NL-TEVA-718229ROM

PATIENT
  Age: 70 Year
  Sex: Female

DRUGS (4)
  1. VUMON [Suspect]
     Active Substance: TENIPOSIDE
     Indication: CENTRAL NERVOUS SYSTEM LYMPHOMA
  2. METHOTREXATE. [Suspect]
     Active Substance: METHOTREXATE
     Indication: CENTRAL NERVOUS SYSTEM LYMPHOMA
  3. BICNU [Suspect]
     Active Substance: CARMUSTINE
     Indication: CENTRAL NERVOUS SYSTEM LYMPHOMA
  4. PREDNISON [Suspect]
     Active Substance: PREDNISONE
     Indication: CENTRAL NERVOUS SYSTEM LYMPHOMA

REACTIONS (7)
  - Leukopenia [Recovering/Resolving]
  - Decubitus ulcer [Unknown]
  - Enterococcal bacteraemia [Unknown]
  - Neutropenia [Recovering/Resolving]
  - Diarrhoea [Recovering/Resolving]
  - Mucosal inflammation [Recovering/Resolving]
  - Pyrexia [Unknown]
